FAERS Safety Report 24892253 (Version 1)
Quarter: 2025Q1

REPORT INFORMATION
  Report Type: Spontaneous
  Country: US (occurrence: US)
  Receive Date: 20250128
  Receipt Date: 20250128
  Transmission Date: 20250408
  Serious: Yes (Hospitalization)
  Sender: JOHNSON AND JOHNSON
  Company Number: US-JNJFOC-20241256477

PATIENT
  Age: 5 Decade
  Sex: Female
  Weight: 65.8 kg

DRUGS (24)
  1. MACITENTAN\TADALAFIL [Suspect]
     Active Substance: MACITENTAN\TADALAFIL
     Indication: Product used for unknown indication
     Route: 048
  2. REMODULIN [Suspect]
     Active Substance: TREPROSTINIL
     Indication: Pulmonary hypertension
     Route: 058
     Dates: start: 20240916
  3. REMODULIN [Suspect]
     Active Substance: TREPROSTINIL
     Route: 058
     Dates: start: 2024
  4. REMODULIN [Suspect]
     Active Substance: TREPROSTINIL
     Route: 058
     Dates: start: 2024
  5. REMODULIN [Suspect]
     Active Substance: TREPROSTINIL
     Route: 058
     Dates: start: 2024
  6. FAMOTIDINE [Concomitant]
     Active Substance: FAMOTIDINE
  7. VITAMIN B1 [Concomitant]
     Active Substance: THIAMINE HYDROCHLORIDE
  8. SODIUM CHLORIDE [Concomitant]
     Active Substance: SODIUM CHLORIDE
  9. TRAMADOL HCL [Concomitant]
     Active Substance: TRAMADOL HYDROCHLORIDE
  10. ALPRAZOLAM [Concomitant]
     Active Substance: ALPRAZOLAM
  11. PREDNISONE [Concomitant]
     Active Substance: PREDNISONE
  12. NICOTINE [Concomitant]
     Active Substance: NICOTINE
  13. MINERALS\VITAMINS [Concomitant]
     Active Substance: MINERALS\VITAMINS
  14. BUTALBITAL, ACETAMINOPHEN AND CAFFEINE WITH CODEINE PHOSPHATE [Concomitant]
     Active Substance: ACETAMINOPHEN\BUTALBITAL\CAFFEINE\CODEINE PHOSPHATE
  15. ONDANSETRON HYDROCHLORIDE [Concomitant]
     Active Substance: ONDANSETRON HYDROCHLORIDE
  16. LORATADINE [Concomitant]
     Active Substance: LORATADINE
  17. AMITRIPTYLINE HYDROCHLORIDE [Concomitant]
     Active Substance: AMITRIPTYLINE HYDROCHLORIDE
  18. KETAMINE HYDROCHLORIDE [Concomitant]
     Active Substance: KETAMINE HYDROCHLORIDE
  19. LECITHIN [Concomitant]
     Active Substance: LECITHIN
  20. CLONIDINE [Concomitant]
     Active Substance: CLONIDINE
  21. KETOPROFEN [Concomitant]
     Active Substance: KETOPROFEN
  22. LIDOCAINE HYDROCHLORIDE [Concomitant]
     Active Substance: LIDOCAINE HYDROCHLORIDE
  23. GABAPENTIN [Concomitant]
     Active Substance: GABAPENTIN
  24. POLOXAMER [Concomitant]
     Active Substance: POLOXAMER

REACTIONS (15)
  - Hospitalisation [Unknown]
  - Unintentional medical device removal [Unknown]
  - Infusion site discharge [Unknown]
  - Device kink [Unknown]
  - Headache [Unknown]
  - Pain in jaw [Unknown]
  - Infusion site pain [Unknown]
  - Bone pain [Unknown]
  - Dermatitis contact [Unknown]
  - Insomnia [Unknown]
  - Infusion site mass [Unknown]
  - Dizziness [Unknown]
  - Constipation [Unknown]
  - Urticaria [Unknown]
  - Device power source issue [Unknown]

NARRATIVE: CASE EVENT DATE: 20240101
